FAERS Safety Report 7774891-0 (Version None)
Quarter: 2011Q3

REPORT INFORMATION
  Report Type: 
  Country: None (occurrence: None)
  Receive Date: 20110923
  Receipt Date: 20110920
  Transmission Date: 20111222
  Serious: Yes (Life-Threatening, Hospitalization, Other)
  Sender: FDA-Public Use
  Company Number: JP-ABBOTT-11P-087-0851349-00

PATIENT
  Age: 39 Year
  Sex: Male

DRUGS (20)
  1. REYATAZ [Suspect]
     Indication: HIV INFECTION
     Route: 048
     Dates: start: 20040130, end: 20040727
  2. RABEPRAZOLE SODIUM [Concomitant]
     Indication: PRODUCT USED FOR UNKNOWN INDICATION
     Dates: end: 20080323
  3. KOGENATE FS [Concomitant]
     Indication: HAEMOPHILIA
     Dosage: UNDER 1000 UNIT, 1-3 TIMES/MONTH
     Route: 042
     Dates: start: 20050412
  4. REYATAZ [Suspect]
     Route: 048
     Dates: start: 20040728, end: 20050424
  5. NORVIR [Suspect]
     Indication: HIV INFECTION
     Route: 048
     Dates: start: 20040728, end: 20050424
  6. ZERIT [Suspect]
     Indication: HIV INFECTION
     Route: 048
     Dates: start: 19981221, end: 20050424
  7. CONTACT F [Concomitant]
     Indication: PRODUCT USED FOR UNKNOWN INDICATION
     Dosage: UNDER 1000 UNIT, 1-3 TIMES/MONTH
     Route: 042
     Dates: start: 20050401, end: 20050411
  8. LAMIVUDINE [Suspect]
     Route: 048
     Dates: start: 20050425, end: 20050523
  9. KOGENATE [Concomitant]
     Indication: PRODUCT USED FOR UNKNOWN INDICATION
     Dates: start: 20050401, end: 20050411
  10. MINOPHAGEN C [Concomitant]
     Indication: HEPATITIS C
     Route: 042
     Dates: start: 20050401, end: 20050615
  11. NORVIR [Suspect]
     Route: 048
     Dates: start: 20080714
  12. EFAVIRENZ [Suspect]
     Indication: HIV INFECTION
     Route: 048
     Dates: start: 20050425, end: 20080713
  13. LAMIVUDINE [Suspect]
     Indication: HIV INFECTION
     Route: 048
     Dates: start: 19971229, end: 20050424
  14. TRUVADA [Suspect]
     Indication: HIV INFECTION
     Route: 048
     Dates: start: 20050524
  15. VIREAD [Suspect]
     Indication: HIV INFECTION
     Route: 048
     Dates: start: 20050425, end: 20050523
  16. GLYCYRRHIZINIC ACID [Concomitant]
     Indication: PRODUCT USED FOR UNKNOWN INDICATION
     Dates: start: 20070418
  17. CYSTEINE [Concomitant]
     Indication: PRODUCT USED FOR UNKNOWN INDICATION
     Dates: start: 20070418
  18. GLYCINE 1.5% [Concomitant]
     Indication: PRODUCT USED FOR UNKNOWN INDICATION
     Dates: start: 20070418
  19. AMMONIUM GLYCYRRHIZINATE [Concomitant]
     Indication: PRODUCT USED FOR UNKNOWN INDICATION
     Dates: start: 20070418
  20. MINOFIT [Concomitant]
     Indication: PRODUCT USED FOR UNKNOWN INDICATION

REACTIONS (6)
  - HEPATIC CIRRHOSIS [None]
  - ARTHRALGIA [None]
  - HEPATOSPLENOMEGALY [None]
  - ARTHRITIS BACTERIAL [None]
  - STAPHYLOCOCCAL INFECTION [None]
  - HYPERTHERMIA [None]
